FAERS Safety Report 24058312 (Version 2)
Quarter: 2024Q3

REPORT INFORMATION
  Report Type: Spontaneous
  Country: DZ (occurrence: DZ)
  Receive Date: 20240708
  Receipt Date: 20240826
  Transmission Date: 20241017
  Serious: Yes (Hospitalization, Other)
  Sender: NOVO NORDISK
  Company Number: DZ-NOVOPROD-1245700

PATIENT
  Sex: Male
  Weight: 15 kg

DRUGS (6)
  1. NOVOSEVEN [Suspect]
     Active Substance: COAGULATION FACTOR VIIA RECOMBINANT HUMAN
     Indication: Haemophilia A with anti factor VIII
     Dosage: 90UG/2H (WITH A POSSIBILITY OF INCREASING TO 120UG)
  2. NOVOSEVEN [Suspect]
     Active Substance: COAGULATION FACTOR VIIA RECOMBINANT HUMAN
     Indication: Prophylaxis
     Dosage: 90UG/3H
     Dates: start: 202406
  3. NOVOSEVEN [Suspect]
     Active Substance: COAGULATION FACTOR VIIA RECOMBINANT HUMAN
     Dosage: 90UG/4H
     Dates: start: 202406, end: 202406
  4. NOVOSEVEN [Suspect]
     Active Substance: COAGULATION FACTOR VIIA RECOMBINANT HUMAN
     Indication: Prophylaxis
     Dosage: 90UG/3H
     Dates: start: 202406
  5. NOVOSEVEN [Suspect]
     Active Substance: COAGULATION FACTOR VIIA RECOMBINANT HUMAN
     Dosage: 90UG/4H
     Dates: start: 202406, end: 202406
  6. NOVOSEVEN [Suspect]
     Active Substance: COAGULATION FACTOR VIIA RECOMBINANT HUMAN
     Indication: Haemophilia A with anti factor VIII
     Dosage: 90UG/2H (WITH A POSSIBILITY OF INCREASING TO 120UG)

REACTIONS (8)
  - Injury [Unknown]
  - Anaemia [Unknown]
  - Haemarthrosis [Recovered/Resolved]
  - Haematoma [Unknown]
  - Thoracic haemorrhage [Recovered/Resolved]
  - Haemorrhage [Unknown]
  - Drug ineffective [Unknown]
  - Off label use [Unknown]

NARRATIVE: CASE EVENT DATE: 20240614
